FAERS Safety Report 12145376 (Version 1)
Quarter: 2016Q1

REPORT INFORMATION
  Report Type: Spontaneous
  Country: US (occurrence: US)
  Receive Date: 20160304
  Receipt Date: 20160304
  Transmission Date: 20160526
  Serious: No
  Sender: FDA-Public Use
  Company Number: US-BAYER-2016-043738

PATIENT
  Age: 85 Year
  Sex: Male
  Weight: 80.27 kg

DRUGS (1)
  1. MIRALAX [Suspect]
     Active Substance: POLYETHYLENE GLYCOL 3350
     Indication: FAECES SOFT
     Dosage: 1 DF, PRN
     Route: 048
     Dates: start: 2013

REACTIONS (2)
  - Diarrhoea [None]
  - Underdose [None]
